FAERS Safety Report 20088892 (Version 1)
Quarter: 2021Q4

REPORT INFORMATION
  Report Type: Other
  Country: DE (occurrence: DE)
  Receive Date: 20211119
  Receipt Date: 20211119
  Transmission Date: 20220303
  Serious: Yes (Life-Threatening, Other)
  Sender: FDA-Public Use
  Company Number: None

PATIENT
  Age: 48 Year
  Sex: Female

DRUGS (10)
  1. LORAZEPAM [Suspect]
     Active Substance: LORAZEPAM
     Indication: Product used for unknown indication
     Dosage: UNK UNK, QD (1.5-3.5 MG/D)
     Route: 065
     Dates: start: 20201229
  2. ARIPIPRAZOLE [Suspect]
     Active Substance: ARIPIPRAZOLE
     Indication: Product used for unknown indication
     Dosage: 15 MILLIGRAM, QD
     Route: 065
     Dates: start: 20201127, end: 20210114
  3. ARIPIPRAZOLE [Suspect]
     Active Substance: ARIPIPRAZOLE
     Dosage: 10 MILLIGRAM, QD
     Route: 065
     Dates: start: 20210115, end: 20210120
  4. ARIPIPRAZOLE [Suspect]
     Active Substance: ARIPIPRAZOLE
     Dosage: 15 MILLIGRAM, QD
     Route: 065
     Dates: start: 20210121
  5. TRAZODONE HYDROCHLORIDE [Suspect]
     Active Substance: TRAZODONE HYDROCHLORIDE
     Indication: Product used for unknown indication
     Dosage: 100 MILLIGRAM, QD
     Route: 065
     Dates: start: 20210111, end: 20210120
  6. CLOZAPINE [Suspect]
     Active Substance: CLOZAPINE
     Indication: Product used for unknown indication
     Dosage: UNK UNK, QD (0-450 MG/D)
     Route: 065
     Dates: start: 20201025, end: 20210131
  7. CLOZAPINE [Suspect]
     Active Substance: CLOZAPINE
     Dosage: 475 MILLIGRAM, QD
     Route: 065
     Dates: start: 20210201, end: 20210210
  8. CLOZAPINE [Suspect]
     Active Substance: CLOZAPINE
     Dosage: 500 MILLIGRAM, QD
     Route: 065
     Dates: start: 20210211, end: 20210214
  9. CLOZAPINE [Suspect]
     Active Substance: CLOZAPINE
     Dosage: UNK (525-550 MG/D)
     Route: 065
     Dates: start: 20210215
  10. POLYETHYLENE GLYCOLS [Concomitant]
     Active Substance: POLYETHYLENE GLYCOLS
     Indication: Product used for unknown indication
     Dosage: 13.8 GRAM
     Route: 065
     Dates: start: 20201028

REACTIONS (4)
  - Hyponatraemia [Recovered/Resolved]
  - Hyponatriuria [Unknown]
  - Psychomotor hyperactivity [Unknown]
  - Insomnia [Unknown]

NARRATIVE: CASE EVENT DATE: 20210105
